FAERS Safety Report 16343791 (Version 2)
Quarter: 2019Q2

REPORT INFORMATION
  Report Type: Spontaneous
  Country: US (occurrence: US)
  Receive Date: 20190522
  Receipt Date: 20190524
  Transmission Date: 20190711
  Serious: No
  Sender: FDA-Public Use
  Company Number: US-PFIZER INC-2019216888

PATIENT
  Age: 67 Year
  Sex: Female
  Weight: 68.4 kg

DRUGS (4)
  1. GABAPENTIN. [Suspect]
     Active Substance: GABAPENTIN
     Indication: MUSCULAR WEAKNESS
  2. GABAPENTIN. [Suspect]
     Active Substance: GABAPENTIN
     Indication: FEELING COLD
     Dosage: 3 DF, DAILY (1 AT NIGHT FOR 2-3 NIGHTS, THEN TOOK 2 AT NIGHT FOR 2 WEEKS, THEN TOOK 3 EVERY NIGHT)
     Route: 048
     Dates: start: 201902, end: 20190509
  3. GABAPENTIN. [Suspect]
     Active Substance: GABAPENTIN
     Indication: NERVE COMPRESSION
  4. GABAPENTIN. [Suspect]
     Active Substance: GABAPENTIN
     Indication: BURNING FEET SYNDROME

REACTIONS (2)
  - Drug ineffective for unapproved indication [Unknown]
  - Off label use [Unknown]

NARRATIVE: CASE EVENT DATE: 201902
